FAERS Safety Report 19704191 (Version 1)
Quarter: 2021Q3

REPORT INFORMATION
  Report Type: Spontaneous
  Country: US (occurrence: US)
  Receive Date: 20210815
  Receipt Date: 20210815
  Transmission Date: 20211014
  Serious: Yes (Disabling)
  Sender: FDA-Public Use
  Company Number: None

PATIENT
  Age: 64 Year
  Sex: Female
  Weight: 103.5 kg

DRUGS (9)
  1. COENZYME Q10 [Concomitant]
     Active Substance: DIETARY SUPPLEMENT\UBIDECARENONE
  2. DULOXETINE HCL [Concomitant]
     Active Substance: DULOXETINE HYDROCHLORIDE
  3. CENTRUM VITAMIN [Concomitant]
  4. AMLODIPINE [Concomitant]
     Active Substance: AMLODIPINE BESYLATE
  5. RED YEAST RICE [Concomitant]
     Active Substance: DIETARY SUPPLEMENT
  6. LOSARTAN AND HYDROCHLOROTHIAZIDE [Concomitant]
     Active Substance: HYDROCHLOROTHIAZIDE\LOSARTAN POTASSIUM
  7. OMEPRAZOLE. [Concomitant]
     Active Substance: OMEPRAZOLE
  8. CRANBERRY. [Concomitant]
     Active Substance: CRANBERRY
  9. GLYXAMBI [Suspect]
     Active Substance: EMPAGLIFLOZIN\LINAGLIPTIN
     Indication: DIABETES MELLITUS
     Route: 048
     Dates: start: 20210610, end: 20210712

REACTIONS (5)
  - Skin discolouration [None]
  - Dysstasia [None]
  - Rash macular [None]
  - Scar [None]
  - Back pain [None]

NARRATIVE: CASE EVENT DATE: 20210610
